FAERS Safety Report 6803666-1 (Version None)
Quarter: 2010Q2

REPORT INFORMATION
  Report Type: 
  Country: None (occurrence: None)
  Receive Date: 20100628
  Receipt Date: 20100615
  Transmission Date: 20101027
  Serious: Yes (Death, Hospitalization, Other)
  Sender: FDA-Public Use
  Company Number: FR-ELI_LILLY_AND_COMPANY-FR201006003979

PATIENT
  Sex: Male

DRUGS (6)
  1. ZYPREXA [Suspect]
     Dosage: 10 MG, UNK
     Route: 048
     Dates: start: 20100103, end: 20100103
  2. SERESTA [Concomitant]
     Dosage: 50 MG, UNK
     Route: 048
     Dates: start: 20100103, end: 20100103
  3. EQUANIL [Concomitant]
     Dosage: 100 MG, UNK
     Route: 048
     Dates: start: 20100103, end: 20100103
  4. MEMANTINE HCL [Concomitant]
     Dosage: 5 MG, UNK
     Route: 048
     Dates: start: 20100103, end: 20100103
  5. ATHYMIL [Concomitant]
     Dosage: 30 MG, UNK
     Route: 048
     Dates: start: 20100103, end: 20100103
  6. ASPEGIC 1000 [Concomitant]
     Dosage: 100 MG, UNK
     Route: 048
     Dates: start: 20100103, end: 20100103

REACTIONS (4)
  - ACCIDENTAL EXPOSURE [None]
  - ALTERED STATE OF CONSCIOUSNESS [None]
  - DRUG TOXICITY [None]
  - PNEUMONIA ASPIRATION [None]
